FAERS Safety Report 5007172-9 (Version None)
Quarter: 2006Q1

REPORT INFORMATION
  Report Type: 
  Country: None (occurrence: None)
  Receive Date: 20060327
  Receipt Date: 20060103
  Transmission Date: 20060701
  Serious: Yes (Death)
  Sender: FDA-Public Use
  Company Number: 220770

PATIENT
  Age: 60 Year
  Sex: Female
  Weight: 75.7 kg

DRUGS (2)
  1. AVASTIN [Suspect]
     Indication: COLON CANCER METASTATIC
     Dosage: SEE IMAGE
     Dates: end: 20050502
  2. AVASTIN [Suspect]
     Indication: COLON CANCER METASTATIC
     Dosage: SEE IMAGE
     Dates: start: 20050309

REACTIONS (2)
  - GASTROINTESTINAL PERFORATION [None]
  - INTESTINAL OBSTRUCTION [None]
